FAERS Safety Report 6315085-5 (Version None)
Quarter: 2009Q4

REPORT INFORMATION
  Report Type: 
  Country: None (occurrence: None)
  Receive Date: 20090817
  Receipt Date: 20090806
  Transmission Date: 20100525
  Serious: Yes (Other)
  Sender: FDA-Public Use
  Company Number: GXKR2009GB08952

PATIENT
  Age: 56 Year
  Sex: Female

DRUGS (3)
  1. CETIRIZINE HCL [Suspect]
     Dosage: 1 DF, QD (1 TOTAL), ORAL
     Route: 048
     Dates: start: 20090601, end: 20090601
  2. VENTOLIN [Concomitant]
  3. FLUOXETINE [Concomitant]

REACTIONS (1)
  - SUICIDAL IDEATION [None]
